FAERS Safety Report 12898901 (Version 1)
Quarter: 2016Q4

REPORT INFORMATION
  Report Type: Spontaneous
  Country: BG (occurrence: BG)
  Receive Date: 20161101
  Receipt Date: 20161101
  Transmission Date: 20170207
  Serious: Yes (Hospitalization)
  Sender: FDA-Public Use
  Company Number: BG-ASTRAZENECA-2016SF12041

PATIENT
  Age: 80 Year
  Sex: Male

DRUGS (7)
  1. NEXIUM [Concomitant]
     Active Substance: ESOMEPRAZOLE MAGNESIUM
  2. ANTIDIABETIC [Concomitant]
     Active Substance: UNSPECIFIED INGREDIENT
  3. ACE-INHIBITOR [Concomitant]
     Active Substance: UNSPECIFIED INGREDIENT
  4. STATIN [Concomitant]
     Active Substance: UNSPECIFIED INGREDIENT
  5. ACETYLSALICYLIC ACID [Concomitant]
     Active Substance: ASPIRIN
     Dates: end: 20161020
  6. BETABLOCKER [Concomitant]
     Dosage: 50 MG IN THE MORNING
  7. BRILIQUE [Suspect]
     Active Substance: TICAGRELOR
     Route: 048

REACTIONS (5)
  - Hiatus hernia [Unknown]
  - Gastrooesophageal reflux disease [Unknown]
  - Melaena [Unknown]
  - Gastritis erosive [Unknown]
  - Off label use [Unknown]

NARRATIVE: CASE EVENT DATE: 20161020
